FAERS Safety Report 5526549-6 (Version None)
Quarter: 2007Q4

REPORT INFORMATION
  Report Type: 
  Country: None (occurrence: None)
  Receive Date: 20071127
  Receipt Date: 20071114
  Transmission Date: 20080405
  Serious: Yes (Hospitalization)
  Sender: FDA-Public Use
  Company Number: FR-ELI_LILLY_AND_COMPANY-FR200707004635

PATIENT
  Age: 77 Year
  Sex: Female
  Weight: 79 kg

DRUGS (5)
  1. FORTEO [Suspect]
     Indication: OSTEOPOROSIS
     Dosage: 20 UG, DAILY (1/D)
     Route: 058
     Dates: start: 20060905, end: 20070623
  2. FORTEO [Suspect]
     Dosage: 20 UG, DAILY (1/D)
     Route: 058
     Dates: start: 20070710
  3. FENOFIBRATE [Concomitant]
     Indication: HYPERCHOLESTEROLAEMIA
     Dosage: 200 MG, DAILY (1/D)
     Route: 048
     Dates: start: 19800101
  4. KENZEN [Concomitant]
     Indication: HYPERTENSION
     Dosage: 32 MG, DAILY (1/D)
     Route: 048
     Dates: start: 19800101
  5. CALCIDOSE [Concomitant]
     Dosage: 1000 MG, DAILY (1/D)
     Route: 048
     Dates: start: 20060901

REACTIONS (2)
  - FALL [None]
  - FEMUR FRACTURE [None]
